FAERS Safety Report 5775903-6 (Version None)
Quarter: 2008Q2

REPORT INFORMATION
  Report Type: 
  Country: None (occurrence: None)
  Receive Date: 20080617
  Receipt Date: 20080606
  Transmission Date: 20081010
  Serious: Yes (Hospitalization)
  Sender: FDA-Public Use
  Company Number: DK-PFIZER INC-2008048213

PATIENT
  Sex: Male

DRUGS (2)
  1. ARTHROTEC [Suspect]
     Indication: ARTHRALGIA
     Dosage: TEXT:TDD: THREE TABLETS-FREQ:FREQUENCY: THREE TIMES A DAY
     Route: 048
     Dates: start: 20080501, end: 20080502
  2. ALLOPURINOL [Suspect]
     Indication: GOUT
     Route: 048
     Dates: start: 20060101, end: 20080411

REACTIONS (1)
  - VASCULITIS [None]
